FAERS Safety Report 11419719 (Version 2)
Quarter: 2015Q3

REPORT INFORMATION
  Report Type: Spontaneous
  Country: JP (occurrence: JP)
  Receive Date: 20150826
  Receipt Date: 20150903
  Transmission Date: 20151125
  Serious: Yes (Other)
  Sender: FDA-Public Use
  Company Number: JP-BAUSCH-BL-2015-020187

PATIENT
  Age: 74 Year
  Sex: Male

DRUGS (5)
  1. FLUOROURACIL. [Suspect]
     Active Substance: FLUOROURACIL
     Indication: HYPOPHARYNGEAL CANCER STAGE IV
     Route: 065
     Dates: start: 2014
  2. NEDAPLATIN [Suspect]
     Active Substance: NEDAPLATIN
     Route: 065
     Dates: start: 201408
  3. FLUOROURACIL. [Suspect]
     Active Substance: FLUOROURACIL
     Route: 065
     Dates: start: 201408
  4. DOCETAXEL. [Suspect]
     Active Substance: DOCETAXEL
     Indication: HYPOPHARYNGEAL CANCER STAGE IV
     Route: 065
     Dates: start: 201408
  5. NEDAPLATIN [Suspect]
     Active Substance: NEDAPLATIN
     Indication: HYPOPHARYNGEAL CANCER STAGE IV
     Route: 065
     Dates: start: 2014

REACTIONS (2)
  - Febrile neutropenia [Recovering/Resolving]
  - Neutropenic colitis [Recovering/Resolving]

NARRATIVE: CASE EVENT DATE: 2014
